FAERS Safety Report 21497759 (Version 2)
Quarter: 2023Q2

REPORT INFORMATION
  Report Type: Spontaneous
  Country: US (occurrence: US)
  Receive Date: 20221024
  Receipt Date: 20230411
  Transmission Date: 20230721
  Serious: No
  Sender: FDA-Public Use
  Company Number: US-SA-SAC20221017000564

PATIENT
  Sex: Female

DRUGS (1)
  1. DUPIXENT [Suspect]
     Active Substance: DUPILUMAB
     Indication: Dermatitis atopic
     Dosage: 300 MG, QOW
     Route: 058
     Dates: start: 20220118

REACTIONS (7)
  - Arthritis [Unknown]
  - Fatigue [Unknown]
  - Tongue ulceration [Unknown]
  - Diplopia [Unknown]
  - Vision blurred [Unknown]
  - Arthralgia [Unknown]
  - Dry eye [Unknown]
